FAERS Safety Report 8600025 (Version 5)
Quarter: 2013Q4

REPORT INFORMATION
  Report Type: Spontaneous
  Country: US (occurrence: None)
  Receive Date: 20120525
  Receipt Date: 20131001
  Transmission Date: 20140711
  Serious: Yes (Other)
  Sender: FDA-Public Use
  Company Number: ADR-2012-00656

PATIENT
  Sex: Female

DRUGS (4)
  1. BACLOFEN [Suspect]
     Indication: SURGERY
  2. FENTANYL [Suspect]
  3. BUPIVACAINE [Suspect]
  4. MORPHINE [Suspect]

REACTIONS (11)
  - Nausea [None]
  - Headache [None]
  - Hypoaesthesia [None]
  - Fall [None]
  - Catheter site bruise [None]
  - Catheter site related reaction [None]
  - Muscle spasms [None]
  - Psychomotor hyperactivity [None]
  - Drug withdrawal syndrome [None]
  - Scar [None]
  - Catheter site pain [None]
